FAERS Safety Report 20833238 (Version 1)
Quarter: 2022Q2

REPORT INFORMATION
  Report Type: Spontaneous
  Country: US (occurrence: US)
  Receive Date: 20220516
  Receipt Date: 20220516
  Transmission Date: 20220721
  Serious: No
  Sender: FDA-Public Use
  Company Number: US-JNJFOC-20220200994

PATIENT
  Sex: Male

DRUGS (9)
  1. RISPERDAL [Suspect]
     Active Substance: RISPERIDONE
     Indication: Attention deficit hyperactivity disorder
     Route: 048
     Dates: start: 20031023
  2. RISPERDAL [Suspect]
     Active Substance: RISPERIDONE
     Indication: Impulsive behaviour
     Route: 048
     Dates: start: 20040326
  3. RISPERDAL [Suspect]
     Active Substance: RISPERIDONE
     Indication: Aggression
     Route: 048
     Dates: start: 20060720, end: 20060816
  4. RISPERDAL [Suspect]
     Active Substance: RISPERIDONE
     Dosage: 2 MG AT NIGHT TIME
     Route: 048
     Dates: start: 20060816
  5. RISPERDAL [Suspect]
     Active Substance: RISPERIDONE
     Dosage: 3 MG AT NIGHT TIME
     Route: 048
     Dates: start: 20060911
  6. RISPERDAL [Suspect]
     Active Substance: RISPERIDONE
     Dosage: 1 AT EVERY MORNING AND 2 EVERY 6 PM
     Route: 048
     Dates: start: 20061004
  7. CONCERTA [Suspect]
     Active Substance: METHYLPHENIDATE HYDROCHLORIDE
     Indication: Attention deficit hyperactivity disorder
     Route: 048
     Dates: start: 20040520
  8. CONCERTA [Suspect]
     Active Substance: METHYLPHENIDATE HYDROCHLORIDE
     Indication: Impulsive behaviour
     Dosage: 54 MG EVERY MORNING
     Route: 048
     Dates: start: 20060720
  9. CONCERTA [Suspect]
     Active Substance: METHYLPHENIDATE HYDROCHLORIDE
     Indication: Aggression

REACTIONS (2)
  - Somnolence [Unknown]
  - Treatment noncompliance [Unknown]
